FAERS Safety Report 20356508 (Version 2)
Quarter: 2022Q1

REPORT INFORMATION
  Report Type: Spontaneous
  Country: US (occurrence: US)
  Receive Date: 20220120
  Receipt Date: 20220126
  Transmission Date: 20220423
  Serious: No
  Sender: FDA-Public Use
  Company Number: US-PFIZER INC-202101167940

PATIENT
  Age: 48 Year
  Sex: Female

DRUGS (1)
  1. IBRANCE [Suspect]
     Active Substance: PALBOCICLIB
     Indication: Breast cancer female
     Dosage: 125 MG, 1X/DAY ( QD FOR 21 DAYS)
     Dates: start: 20210813

REACTIONS (5)
  - Dizziness [Unknown]
  - Fatigue [Unknown]
  - White blood cell count decreased [Unknown]
  - Alopecia [Unknown]
  - Stomatitis [Unknown]
